FAERS Safety Report 5446886-3 (Version None)
Quarter: 2007Q3

REPORT INFORMATION
  Report Type: 
  Country: None (occurrence: None)
  Receive Date: 20070907
  Receipt Date: 20070827
  Transmission Date: 20080115
  Serious: Yes (Other)
  Sender: FDA-Public Use
  Company Number: US-PFIZER INC-2007073108

PATIENT
  Sex: Female
  Weight: 85.7 kg

DRUGS (14)
  1. CHANTIX [Suspect]
     Indication: SMOKING CESSATION THERAPY
  2. BACLOFEN [Suspect]
  3. PLAVIX [Concomitant]
  4. ASPIRIN [Concomitant]
  5. LOVASTATIN [Concomitant]
  6. NORVASC [Concomitant]
  7. ATENOLOL [Concomitant]
  8. PREVACID [Concomitant]
  9. TRICOR [Concomitant]
  10. OMACOR [Concomitant]
  11. KLOR-CON [Concomitant]
  12. HYDROCHLOROTHIAZIDE [Concomitant]
  13. VALSARTAN [Concomitant]
  14. ACTONEL [Concomitant]

REACTIONS (7)
  - DEPRESSION [None]
  - DYSGEUSIA [None]
  - MALAISE [None]
  - MUSCULAR WEAKNESS [None]
  - NAUSEA [None]
  - RETCHING [None]
  - VOMITING [None]
